FAERS Safety Report 5176736-4 (Version None)
Quarter: 2006Q4

REPORT INFORMATION
  Report Type: 
  Country: None (occurrence: None)
  Receive Date: 20061218
  Receipt Date: 20061204
  Transmission Date: 20070319
  Serious: Yes (Other)
  Sender: FDA-Public Use
  Company Number: FR-ELI_LILLY_AND_COMPANY-FR200612001556

PATIENT
  Age: 30 Year
  Sex: Female

DRUGS (2)
  1. GEMCITABINE HCL [Suspect]
     Indication: LUNG NEOPLASM MALIGNANT
     Route: 042
  2. PLATINUM COMPOUNDS [Concomitant]
     Indication: LUNG NEOPLASM MALIGNANT

REACTIONS (1)
  - THROMBOTIC MICROANGIOPATHY [None]
